FAERS Safety Report 8155895-5 (Version None)
Quarter: 2012Q1

REPORT INFORMATION
  Report Type: 
  Country: None (occurrence: None)
  Receive Date: 20120222
  Receipt Date: 20120215
  Transmission Date: 20120608
  Serious: Yes (Hospitalization)
  Sender: FDA-Public Use
  Company Number: JP-JNJFOC-20120105677

PATIENT
  Sex: Male

DRUGS (15)
  1. VERAPAMIL HCL [Concomitant]
     Indication: ATRIAL FIBRILLATION
     Route: 048
     Dates: start: 20110302
  2. MOTILIUM [Concomitant]
     Indication: GASTRITIS
     Route: 048
     Dates: start: 20110314
  3. LEVOFLOXACIN [Suspect]
     Route: 048
     Dates: end: 20120111
  4. LEVOFLOXACIN [Suspect]
     Route: 048
     Dates: start: 20111223, end: 20111225
  5. ASPIRIN [Concomitant]
     Indication: PERIPHERAL ARTERIAL OCCLUSIVE DISEASE
     Route: 048
  6. ALFAROL [Concomitant]
     Indication: DIALYSIS
     Route: 048
     Dates: start: 20110606
  7. LEVOFLOXACIN [Suspect]
     Indication: INTERVERTEBRAL DISCITIS
     Route: 048
     Dates: start: 20110623
  8. LEVOFLOXACIN [Suspect]
     Route: 048
     Dates: start: 20110625, end: 20111108
  9. EPADEL [Concomitant]
     Indication: PERIPHERAL ARTERIAL OCCLUSIVE DISEASE
     Route: 048
     Dates: start: 20100120
  10. RABEPRAZOLE SODIUM [Concomitant]
     Indication: GASTRITIS
     Route: 048
     Dates: start: 20110622
  11. AMOBAN [Concomitant]
     Indication: INSOMNIA
     Route: 048
  12. LEVOFLOXACIN [Suspect]
     Route: 048
     Dates: start: 20111109, end: 20111222
  13. LEVOFLOXACIN [Suspect]
     Route: 048
     Dates: start: 20111228, end: 20120110
  14. BIO-THREE [Concomitant]
     Indication: GASTRITIS
     Route: 048
     Dates: start: 20110627
  15. ALFAROL [Concomitant]
     Indication: RENAL FAILURE CHRONIC
     Route: 048
     Dates: start: 20110606

REACTIONS (6)
  - NAUSEA [None]
  - HEPATIC FUNCTION ABNORMAL [None]
  - PLATELET COUNT DECREASED [None]
  - PERIPHERAL ISCHAEMIA [None]
  - VOMITING [None]
  - ACCIDENTAL OVERDOSE [None]
